FAERS Safety Report 10367405 (Version 1)
Quarter: 2014Q3

REPORT INFORMATION
  Report Type: Spontaneous
  Country: US (occurrence: None)
  Receive Date: 20140805
  Receipt Date: 20140805
  Transmission Date: 20150326
  Serious: No
  Sender: FDA-Public Use
  Company Number: None

PATIENT
  Age: 72 Year
  Sex: Female

DRUGS (1)
  1. ATORVASTATIN [Suspect]
     Active Substance: ATORVASTATIN
     Dates: start: 20120826, end: 20120922

REACTIONS (12)
  - Hepatic steatosis [None]
  - Fatigue [None]
  - Hepatitis cholestatic [None]
  - Urinary tract infection [None]
  - Drug-induced liver injury [None]
  - Sluggishness [None]
  - Antimitochondrial antibody positive [None]
  - Weight decreased [None]
  - Blood immunoglobulin G decreased [None]
  - Asthenia [None]
  - Hepatomegaly [None]
  - Decreased appetite [None]

NARRATIVE: CASE EVENT DATE: 20120925
